FAERS Safety Report 14923638 (Version 8)
Quarter: 2018Q3

REPORT INFORMATION
  Report Type: Spontaneous
  Country: PL (occurrence: PL)
  Receive Date: 20180522
  Receipt Date: 20180912
  Transmission Date: 20181010
  Serious: Yes (Other)
  Sender: FDA-Public Use
  Company Number: PL-PFIZER INC-2018199876

PATIENT
  Age: 62 Year
  Sex: Male
  Weight: 137 kg

DRUGS (7)
  1. ZOLPIDEM [Interacting]
     Active Substance: ZOLPIDEM\ZOLPIDEM TARTRATE
     Indication: INSOMNIA
     Dosage: UNK
  2. ZOLPIDEM [Interacting]
     Active Substance: ZOLPIDEM\ZOLPIDEM TARTRATE
     Indication: POST STROKE DEPRESSION
  3. SERTRALINE HCL [Interacting]
     Active Substance: SERTRALINE HYDROCHLORIDE
     Indication: INSOMNIA
  4. SERTRALINE HCL [Suspect]
     Active Substance: SERTRALINE HYDROCHLORIDE
     Indication: POST STROKE DEPRESSION
     Dosage: UNK
  5. GINKGO BILOBA EXTRACT [Interacting]
     Active Substance: GINKGO
     Indication: CEREBROVASCULAR ACCIDENT
     Dosage: UNK
  6. WARFARIN [Concomitant]
     Active Substance: WARFARIN
     Indication: CEREBROVASCULAR ACCIDENT
     Dosage: UNK
  7. SOTALOL. [Concomitant]
     Active Substance: SOTALOL
     Indication: CEREBROVASCULAR ACCIDENT
     Dosage: UNK

REACTIONS (3)
  - Drug interaction [Unknown]
  - Apallic syndrome [Unknown]
  - Ischaemic stroke [Unknown]
